FAERS Safety Report 8674056 (Version 2)
Quarter: 2012Q4

REPORT INFORMATION
  Report Type: 
  Country: US (occurrence: US)
  Receive Date: 20120719
  Receipt Date: 20120829
  Transmission Date: 20130627
  Serious: Yes (Death, Hospitalization, Other)
  Sender: FDA-Public Use
  Company Number: US-ELI_LILLY_AND_COMPANY-US201207005193

PATIENT
  Age: 83 Year
  Sex: Male
  Weight: 94.79 kg

DRUGS (11)
  1. ALIMTA [Suspect]
     Indication: LUNG ADENOCARCINOMA
     Dosage: 1000 mg, unknown
     Route: 042
     Dates: start: 20120604
  2. ATENOLOL [Concomitant]
     Dosage: 25 mg, qd
  3. LISINOPRIL [Concomitant]
     Dosage: 2.5 mg, qd
  4. GEMFIBROZIL [Concomitant]
     Dosage: 600 mg, bid
  5. FUROSEMIDE [Concomitant]
     Dosage: 20 mg, bid
  6. WARFARIN [Concomitant]
     Dosage: UNK, qd
  7. TYLENOL                                 /SCH/ [Concomitant]
     Dosage: 500 mg, bid
  8. FOLIC ACID [Concomitant]
     Dosage: 1 mg, qd
     Route: 048
     Dates: start: 20120523
  9. VITAMIN B12 [Concomitant]
     Dosage: 1000 ug, UNK
     Route: 030
     Dates: start: 20120522
  10. CORTICOSTEROID NOS [Concomitant]
     Dosage: 5 mg, UNK
     Route: 048
     Dates: start: 20120605, end: 20120612
  11. CORTICOSTEROID NOS [Concomitant]
     Dosage: 10 mg, UNK
     Route: 048
     Dates: start: 20120605, end: 20120612

REACTIONS (4)
  - Septic shock [Fatal]
  - Neoplasm progression [Fatal]
  - Respiratory failure [Unknown]
  - Oral pain [Unknown]
